FAERS Safety Report 6842180-4 (Version None)
Quarter: 2010Q3

REPORT INFORMATION
  Report Type: 
  Country: None (occurrence: None)
  Receive Date: 20100709
  Receipt Date: 20100629
  Transmission Date: 20110219
  Serious: Yes (Disabling, Other)
  Sender: FDA-Public Use
  Company Number: 2010AL003513

PATIENT
  Age: 49 Year
  Sex: Female

DRUGS (3)
  1. METFORMIN HYDROCHLORIDE [Suspect]
     Indication: DIABETES MELLITUS
     Dosage: 1500, MG; QD; PO
     Route: 048
     Dates: start: 20090828
  2. SIMVASTATIN [Concomitant]
  3. CYCLO-PROGYNOVA [Concomitant]

REACTIONS (1)
  - PEMPHIGUS [None]
